FAERS Safety Report 12429347 (Version 1)
Quarter: 2016Q2

REPORT INFORMATION
  Report Type: Spontaneous
  Country: BR (occurrence: BR)
  Receive Date: 20160602
  Receipt Date: 20160602
  Transmission Date: 20160815
  Serious: Yes (Other)
  Sender: FDA-Public Use
  Company Number: BR-JNJFOC-20160528390

PATIENT
  Age: 72 Year
  Sex: Male

DRUGS (8)
  1. XARELTO [Suspect]
     Active Substance: RIVAROXABAN
     Indication: CARDIAC VALVE DISEASE
     Route: 048
  2. FORMOTEROL FUMARATE [Concomitant]
     Active Substance: FORMOTEROL FUMARATE
     Indication: BRONCHITIS
     Route: 065
  3. LOSARTAN. [Concomitant]
     Active Substance: LOSARTAN
     Indication: HYPERTENSION
     Route: 048
     Dates: start: 2014
  4. DOXAZOSIN MESYLATE. [Concomitant]
     Active Substance: DOXAZOSIN MESYLATE
     Indication: PROSTATIC DISORDER
     Route: 048
     Dates: start: 201603
  5. XARELTO [Suspect]
     Active Substance: RIVAROXABAN
     Indication: CARDIAC VALVE DISEASE
     Route: 048
  6. MODURETIC 5-50 [Concomitant]
     Active Substance: AMILORIDE HYDROCHLORIDE\HYDROCHLOROTHIAZIDE
     Indication: PERIPHERAL SWELLING
     Route: 048
  7. ANCORON [Concomitant]
     Active Substance: AMIODARONE HYDROCHLORIDE
     Indication: HYPERTENSION
     Route: 048
     Dates: start: 2010
  8. BUDESONIDE. [Concomitant]
     Active Substance: BUDESONIDE
     Indication: BRONCHITIS
     Route: 065

REACTIONS (6)
  - Hypercoagulation [Not Recovered/Not Resolved]
  - Rash macular [Not Recovered/Not Resolved]
  - Thrombosis [Unknown]
  - International normalised ratio increased [Unknown]
  - Off label use [Unknown]
  - Haemorrhage [Recovered/Resolved]

NARRATIVE: CASE EVENT DATE: 201511
